FAERS Safety Report 9806113 (Version 1)
Quarter: 2014Q1

REPORT INFORMATION
  Report Type: Spontaneous
  Country: JP (occurrence: None)
  Receive Date: 20140107
  Receipt Date: 20140107
  Transmission Date: 20141002
  Serious: Yes (Hospitalization)
  Sender: FDA-Public Use
  Company Number: ABR_01371_2013

PATIENT
  Age: 48 Year
  Sex: Female
  Weight: 53.3 kg

DRUGS (2)
  1. GLIADEL (GLIADEL-CARMUSTINE) 7.7 MG [Suspect]
     Indication: MALIGNANT GLIOMA
     Dosage: 1X INTRACEREBRAL
     Dates: start: 20130710, end: 20130710
  2. TEMODAL [Concomitant]

REACTIONS (6)
  - Brain oedema [None]
  - Hemiplegia [None]
  - Gamma-glutamyltransferase increased [None]
  - C-reactive protein increased [None]
  - Alanine aminotransferase increased [None]
  - Blood alkaline phosphatase increased [None]
